FAERS Safety Report 16537466 (Version 3)
Quarter: 2019Q3

REPORT INFORMATION
  Report Type: Report from Study
  Country: None (occurrence: GR)
  Receive Date: 20190708
  Receipt Date: 20190711
  Transmission Date: 20191004
  Serious: Yes (Hospitalization)
  Sender: FDA-Public Use
  Company Number: GR-ABBVIE-19K-066-2844318-00

PATIENT
  Sex: Male
  Weight: 59 kg

DRUGS (7)
  1. DUODOPA [Suspect]
     Active Substance: CARBIDOPA\LEVODOPA
     Dosage: MORNING DOSE:14ML; CONTINUOUS RATE: 3.6ML/H; EXTRA DOSE:1.8ML
     Route: 050
     Dates: start: 201907
  2. REMERON [Concomitant]
     Active Substance: MIRTAZAPINE
     Indication: DEPRESSION
     Dosage: HALF OF UNKNOWN, ONCE DAILY; ONE AND HALF OF UNKNOWN, ONCE DAILY
     Route: 048
  3. CLONOTRIL [Concomitant]
     Active Substance: CLONAZEPAM
     Indication: PRODUCT USED FOR UNKNOWN INDICATION
     Route: 048
  4. LOSEC [Concomitant]
     Active Substance: OMEPRAZOLE
     Indication: PROPHYLAXIS
     Route: 048
  5. DUODOPA [Suspect]
     Active Substance: CARBIDOPA\LEVODOPA
     Indication: PARKINSON^S DISEASE
     Route: 050
     Dates: start: 20190610, end: 20190703
  6. EFEXOR [Concomitant]
     Active Substance: VENLAFAXINE HYDROCHLORIDE
     Indication: DEPRESSION
     Route: 048
  7. DUODOPA [Suspect]
     Active Substance: CARBIDOPA\LEVODOPA
     Dosage: MORNING DOSE:14ML; CONTINUOUS RATE:3.1ML/H; EXTRA DOSE:1.8ML
     Route: 050
     Dates: start: 20190703, end: 201907

REACTIONS (2)
  - C-reactive protein increased [Recovering/Resolving]
  - Stoma site reaction [Unknown]

NARRATIVE: CASE EVENT DATE: 2019
